FAERS Safety Report 13058380 (Version 1)
Quarter: 2016Q4

REPORT INFORMATION
  Report Type: Spontaneous
  Country: US (occurrence: US)
  Receive Date: 20161223
  Receipt Date: 20161223
  Transmission Date: 20170207
  Serious: No
  Sender: FDA-Public Use
  Company Number: US-PFIZER INC-2016583024

PATIENT
  Sex: Female

DRUGS (1)
  1. XELJANZ [Suspect]
     Active Substance: TOFACITINIB CITRATE
     Dosage: 5 MG, UNK

REACTIONS (8)
  - Infection [Unknown]
  - Arthropathy [Unknown]
  - Muscle spasms [Unknown]
  - Weight decreased [Unknown]
  - Memory impairment [Unknown]
  - Temperature intolerance [Unknown]
  - Synovitis [Unknown]
  - Muscular weakness [Unknown]
